FAERS Safety Report 4560902-2 (Version None)
Quarter: 2005Q1

REPORT INFORMATION
  Report Type: 
  Country: None (occurrence: None)
  Receive Date: 20050126
  Receipt Date: 20050118
  Transmission Date: 20050727
  Serious: Yes (Hospitalization)
  Sender: FDA-Public Use
  Company Number: JP-JNJFOC-20041201273

PATIENT
  Age: 60 Year
  Sex: Female

DRUGS (4)
  1. DUROTEP [Suspect]
     Route: 062
  2. DUROTEP [Suspect]
     Indication: CANCER PAIN
     Dosage: THREE 2.5 MG PATCHES
     Route: 062
  3. INCADRONATE DISODIUM [Concomitant]
  4. STEROID [Concomitant]
     Route: 049

REACTIONS (3)
  - DELIRIUM [None]
  - HYPERCALCAEMIA [None]
  - TUMOUR ASSOCIATED FEVER [None]
